FAERS Safety Report 4568057-5 (Version None)
Quarter: 2005Q1

REPORT INFORMATION
  Report Type: 
  Country: None (occurrence: None)
  Receive Date: 20050131
  Receipt Date: 20050117
  Transmission Date: 20050727
  Serious: Yes (Death, Hospitalization)
  Sender: FDA-Public Use
  Company Number: 2005015158

PATIENT
  Age: 77 Year
  Sex: Male

DRUGS (5)
  1. CAMPTOSAR [Suspect]
     Indication: PERITONEAL CARCINOMA
     Dosage: INTRAVENOUS
     Route: 042
     Dates: start: 20041110
  2. CETUXIMAB (CETUXIMAB) [Suspect]
     Indication: PERITONEAL CARCINOMA
     Dosage: INTRAVENOUS
     Route: 042
     Dates: start: 20041110
  3. FENTANYL [Concomitant]
  4. DILTIAZEM HYDROCHLORIDE [Concomitant]
  5. SERENOA REPENS (SERENOA REPENS) [Concomitant]

REACTIONS (6)
  - INFLAMMATION [None]
  - LUNG DISORDER [None]
  - LYMPH NODE TUBERCULOSIS [None]
  - LYMPHANGIOSIS CARCINOMATOSA [None]
  - PYREXIA [None]
  - RESPIRATORY DISTRESS [None]
